FAERS Safety Report 23498811 (Version 1)
Quarter: 2024Q1

REPORT INFORMATION
  Report Type: Report from Study
  Country: US (occurrence: US)
  Receive Date: 20240208
  Receipt Date: 20240208
  Transmission Date: 20240410
  Serious: Yes (Other)
  Sender: FDA-Public Use
  Company Number: US-ABBVIE-5623618

PATIENT
  Age: 73 Year
  Sex: Male

DRUGS (1)
  1. SKYRIZI [Suspect]
     Active Substance: RISANKIZUMAB-RZAA
     Indication: Psoriasis
     Route: 058
     Dates: start: 20231024

REACTIONS (7)
  - Spinal decompression [Recovering/Resolving]
  - Erythema [Recovering/Resolving]
  - Drug ineffective [Recovering/Resolving]
  - Incision site pain [Unknown]
  - Psoriasis [Recovering/Resolving]
  - Dermatitis [Unknown]
  - Fatigue [Unknown]

NARRATIVE: CASE EVENT DATE: 20240122
